FAERS Safety Report 21291514 (Version 1)
Quarter: 2022Q3

REPORT INFORMATION
  Report Type: Spontaneous
  Country: US (occurrence: US)
  Receive Date: 20220903
  Receipt Date: 20220903
  Transmission Date: 20221026
  Serious: No
  Sender: FDA-Public Use
  Company Number: US-TEVA-2022-US-2068652

PATIENT
  Age: 70 Year
  Sex: Male

DRUGS (5)
  1. NEFAZODONE [Suspect]
     Active Substance: NEFAZODONE
     Indication: Depression
     Dosage: STRENGTH: 100 MG, UNIT DOSE: 150 MG
  2. NEFAZODONE [Suspect]
     Active Substance: NEFAZODONE
     Indication: Anxiety
     Dosage: UNIT DOSE: 200 MG
  3. TRAZODONE [Suspect]
     Active Substance: TRAZODONE HYDROCHLORIDE
     Indication: Sleep disorder
     Dosage: STRENGTH: 100 MG, UNIT DOSE: 200 MG
  4. CLONAZEPAM [Concomitant]
     Active Substance: CLONAZEPAM
     Indication: Product used for unknown indication
     Dosage: 1.5 MILLIGRAM DAILY; STRENGTH: 1MG, ONE AND A HALF TABLETS IN THE EVENING
  5. BUSPIRONE HYDROCHLORIDE [Concomitant]
     Active Substance: BUSPIRONE HYDROCHLORIDE
     Indication: Product used for unknown indication
     Dosage: STRENGTH: 15 MG, ONE AND A HALF TABLETS

REACTIONS (4)
  - Sexual dysfunction [Unknown]
  - Depression [Unknown]
  - Hypertension [Unknown]
  - Product availability issue [Unknown]
